FAERS Safety Report 8478712-2 (Version None)
Quarter: 2012Q2

REPORT INFORMATION
  Report Type: 
  Country: None (occurrence: None)
  Receive Date: 20120629
  Receipt Date: 20120627
  Transmission Date: 20120825
  Serious: Yes (Death)
  Sender: FDA-Public Use
  Company Number: US-ROCHE-1082650

PATIENT
  Sex: Female

DRUGS (1)
  1. XELODA [Suspect]
     Indication: METASTATIC NEOPLASM
     Route: 048
     Dates: start: 20120318

REACTIONS (1)
  - DEATH [None]
